FAERS Safety Report 24057421 (Version 2)
Quarter: 2024Q3

REPORT INFORMATION
  Report Type: Spontaneous
  Country: IT (occurrence: IT)
  Receive Date: 20240706
  Receipt Date: 20240709
  Transmission Date: 20241016
  Serious: Yes (Other)
  Sender: ROCHE
  Company Number: None

PATIENT
  Age: 45 Year
  Sex: Female

DRUGS (5)
  1. TOCILIZUMAB [Suspect]
     Active Substance: TOCILIZUMAB
     Indication: Multiple sclerosis
     Dosage: ROACTEMRA (TOCILIZUMAB) 400MG IN 10CC DI FISIOLOGICA 1 VOLTA/MESE.
     Route: 042
  2. TEGRETOL [Concomitant]
     Active Substance: CARBAMAZEPINE
     Indication: Thyroidectomy
     Dosage: TEGRETOL 200MG 1CP/DIE.
     Route: 048
  3. PREDNISONE [Concomitant]
     Active Substance: PREDNISONE
     Dosage: DELTACORTENE 7.5MG/DIE A GIORNI ALTERNI.
     Route: 048
  4. LYRICA [Concomitant]
     Active Substance: PREGABALIN
     Indication: Neuralgia
     Dosage: LYRICA 150MG 3VOLTE/DIE
     Route: 048
  5. CYMBALTA [Concomitant]
     Active Substance: DULOXETINE HYDROCHLORIDE
     Indication: Generalised anxiety disorder
     Dosage: CYMBALTA 30MG 1CP/DIE.
     Route: 048

REACTIONS (2)
  - Otitis media [Unknown]
  - Pneumonitis [Unknown]

NARRATIVE: CASE EVENT DATE: 20240108
